FAERS Safety Report 8180439-1 (Version None)
Quarter: 2012Q1

REPORT INFORMATION
  Report Type: 
  Country: None (occurrence: None)
  Receive Date: 20120302
  Receipt Date: 20120215
  Transmission Date: 20120608
  Serious: Yes (Death)
  Sender: FDA-Public Use
  Company Number: US-ALLERGAN-0808832US

PATIENT
  Age: 22 Year
  Sex: Male

DRUGS (2)
  1. BOTULINUM TOXIN TYPE A [Suspect]
     Indication: PNEUMONIA ASPIRATION
  2. BOTULINUM TOXIN TYPE A [Suspect]
     Indication: SALIVARY HYPERSECRETION
     Dosage: 20 UNITS, SINGLE
     Route: 050
     Dates: start: 20080331, end: 20080331

REACTIONS (1)
  - APTYALISM [None]
